FAERS Safety Report 8259653 (Version 2)
Quarter: 2013Q1

REPORT INFORMATION
  Report Type: Report from Study
  Country: JP (occurrence: JP)
  Receive Date: 20111122
  Receipt Date: 20130205
  Transmission Date: 20140127
  Serious: Yes (Death, Hospitalization)
  Sender: FDA-Public Use
  Company Number: JP-VIIV HEALTHCARE LIMITED-B0763625A

PATIENT
  Age: 4 Decade
  Sex: Male
  Weight: 50 kg

DRUGS (14)
  1. EPZICOM [Suspect]
     Indication: ACQUIRED IMMUNODEFICIENCY SYNDROME
     Dosage: 1IUAX PER DAY
     Route: 048
     Dates: start: 20101005, end: 20110416
  2. EPIVIR [Suspect]
     Indication: ACQUIRED IMMUNODEFICIENCY SYNDROME
     Route: 048
     Dates: start: 20110417, end: 20110506
  3. ZIAGEN [Suspect]
     Indication: ACQUIRED IMMUNODEFICIENCY SYNDROME
     Route: 048
     Dates: start: 20110417, end: 20110506
  4. LEXIVA [Suspect]
     Indication: ACQUIRED IMMUNODEFICIENCY SYNDROME
     Dosage: 1400MG TWICE PER DAY
     Route: 048
     Dates: start: 20101023, end: 20110216
  5. MYCOBUTIN [Suspect]
     Indication: TUBERCULOSIS
     Dosage: 150MG PER DAY
     Route: 048
     Dates: start: 20101217, end: 20110215
  6. MYCOBUTIN [Suspect]
     Indication: TUBERCULOSIS
     Dosage: 150MG THREE TIMES PER DAY
     Route: 048
     Dates: start: 20110216, end: 20110317
  7. KALETRA [Suspect]
     Indication: ACQUIRED IMMUNODEFICIENCY SYNDROME
     Route: 048
     Dates: start: 20090714, end: 20101004
  8. KALETRA [Suspect]
     Indication: ACQUIRED IMMUNODEFICIENCY SYNDROME
     Route: 048
     Dates: start: 20110217, end: 20110227
  9. TRUVADA [Suspect]
     Indication: ACQUIRED IMMUNODEFICIENCY SYNDROME
     Route: 048
     Dates: start: 20090714, end: 20101004
  10. ISENTRESS [Suspect]
     Indication: ACQUIRED IMMUNODEFICIENCY SYNDROME
     Route: 048
     Dates: start: 20101005, end: 20101022
  11. ISENTRESS [Suspect]
     Indication: ACQUIRED IMMUNODEFICIENCY SYNDROME
     Route: 048
     Dates: start: 20110331, end: 20110506
  12. BAKTAR [Concomitant]
     Indication: ANTIFUNGAL PROPHYLAXIS
     Dosage: 1IUAX PER DAY
     Route: 048
     Dates: start: 20100401, end: 20101005
  13. NORVIR SOFT [Concomitant]
     Indication: ACQUIRED IMMUNODEFICIENCY SYNDROME
     Route: 048
     Dates: start: 20110228, end: 20110330
  14. PREZISTA [Concomitant]
     Indication: ACQUIRED IMMUNODEFICIENCY SYNDROME
     Route: 048
     Dates: start: 20110228, end: 20110330

REACTIONS (6)
  - Pneumonia [Fatal]
  - Multi-organ failure [Fatal]
  - Acute respiratory distress syndrome [Fatal]
  - Disseminated tuberculosis [Recovering/Resolving]
  - Lung infection [Not Recovered/Not Resolved]
  - Immune reconstitution inflammatory syndrome [Unknown]
